FAERS Safety Report 15023032 (Version 1)
Quarter: 2018Q2

REPORT INFORMATION
  Report Type: Spontaneous
  Country: DE (occurrence: DE)
  Receive Date: 20180618
  Receipt Date: 20180618
  Transmission Date: 20180711
  Serious: Yes (Hospitalization)
  Sender: FDA-Public Use
  Company Number: DE-PFIZER INC-2018244707

PATIENT
  Age: 50 Year
  Sex: Female

DRUGS (7)
  1. INSULIN [Concomitant]
     Active Substance: INSULIN NOS
     Dosage: NK IE, NK, INSULIN PUMP
  2. FOLIC ACID. [Concomitant]
     Active Substance: FOLIC ACID
     Dosage: NK MG, 1 X ON MONDAYS
  3. LEVOTHYROXIN [Concomitant]
     Active Substance: LEVOTHYROXINE
     Dosage: 100 UG, 1-0-0-0
  4. METHOTREXATE SODIUM. [Suspect]
     Active Substance: METHOTREXATE SODIUM
     Dosage: 20 MG, 1 X WEEKLY
     Route: 065
  5. COLECALCIFEROL [Concomitant]
     Active Substance: CHOLECALCIFEROL
     Dosage: NK MG, 1-0-0-0
  6. PREDNISOLONE. [Concomitant]
     Active Substance: PREDNISOLONE
     Dosage: ALTERNATE 0.5-0-0-0
  7. PREDNISOLONE. [Concomitant]
     Active Substance: PREDNISOLONE
     Dosage: 5 MG, 1-0-0-0; ALTERNATE 0.5-0-0-0

REACTIONS (4)
  - Muscular weakness [Unknown]
  - Headache [Unknown]
  - Depressed level of consciousness [Unknown]
  - Paraesthesia [Unknown]
